FAERS Safety Report 6707123-2 (Version None)
Quarter: 2010Q2

REPORT INFORMATION
  Report Type: 
  Country: None (occurrence: None)
  Receive Date: 20100503
  Receipt Date: 20100422
  Transmission Date: 20101027
  Serious: Yes (Hospitalization, Other)
  Sender: FDA-Public Use
  Company Number: US-BAXTER-2010BH011503

PATIENT
  Age: 19 Year
  Sex: Male

DRUGS (4)
  1. FEIBA VH IMMUNO [Suspect]
     Indication: FACTOR VIII DEFICIENCY
     Route: 042
     Dates: start: 20071105, end: 20090101
  2. FEIBA VH IMMUNO [Suspect]
     Route: 042
     Dates: start: 20090101, end: 20090126
  3. NOVOSEVEN [Suspect]
     Indication: FACTOR VIII DEFICIENCY
     Route: 042
     Dates: start: 20090126
  4. NOVOSEVEN [Suspect]
     Route: 042
     Dates: start: 20050930, end: 20071105

REACTIONS (3)
  - MYOCARDIAL INFARCTION [None]
  - PAIN IN EXTREMITY [None]
  - THROMBOSIS [None]
